FAERS Safety Report 7517719-6 (Version None)
Quarter: 2011Q2

REPORT INFORMATION
  Report Type: 
  Country: None (occurrence: None)
  Receive Date: 20110602
  Receipt Date: 20110524
  Transmission Date: 20111010
  Serious: No
  Sender: FDA-Public Use
  Company Number: US-BIOGENIDEC-2011BI009931

PATIENT
  Sex: Female

DRUGS (2)
  1. CHANTIX [Concomitant]
  2. TYSABRI [Suspect]
     Indication: MULTIPLE SCLEROSIS
     Route: 042
     Dates: start: 20110224, end: 20110406

REACTIONS (11)
  - EAR INFECTION [None]
  - NAUSEA [None]
  - VOMITING [None]
  - MUSCULAR WEAKNESS [None]
  - OPTIC NEURITIS [None]
  - ERYTHEMA [None]
  - BRONCHITIS [None]
  - ANTIBODY TEST POSITIVE [None]
  - STRESS [None]
  - SINUSITIS [None]
  - HYPOAESTHESIA [None]
